FAERS Safety Report 19919874 (Version 2)
Quarter: 2021Q4

REPORT INFORMATION
  Report Type: Spontaneous
  Country: BG (occurrence: BG)
  Receive Date: 20211005
  Receipt Date: 20211007
  Transmission Date: 20220303
  Serious: Yes (Other)
  Sender: FDA-Public Use
  Company Number: BG-009507513-2110BGR000342

PATIENT
  Weight: 25 kg

DRUGS (2)
  1. METFORMIN HYDROCHLORIDE\SITAGLIPTIN PHOSPHATE [Suspect]
     Active Substance: METFORMIN HYDROCHLORIDE\SITAGLIPTIN PHOSPHATE
     Indication: Type 2 diabetes mellitus
     Dosage: 1 TABLET, 2 TIMES A DAY
     Route: 048
     Dates: start: 2014
  2. HUMALOG MIX75/25 [Concomitant]
     Active Substance: INSULIN LISPRO

REACTIONS (5)
  - Diabetes mellitus inadequate control [Unknown]
  - Blood glucose fluctuation [Unknown]
  - Paraesthesia [Unknown]
  - Burning sensation [Unknown]
  - Decreased vibratory sense [Unknown]
